FAERS Safety Report 7147045-9 (Version None)
Quarter: 2010Q4

REPORT INFORMATION
  Report Type: 
  Country: None (occurrence: None)
  Receive Date: 20101209
  Receipt Date: 20100504
  Transmission Date: 20110411
  Serious: Yes (Death, Life-Threatening, Hospitalization, Other)
  Sender: FDA-Public Use
  Company Number: US-ACTELION-A-US2010-36256

PATIENT

DRUGS (2)
  1. TRACLEER [Suspect]
     Indication: PULMONARY ARTERIAL HYPERTENSION
     Dosage: UNK MG, UNK
     Route: 048
     Dates: start: 20100407
  2. REVATIO [Concomitant]

REACTIONS (9)
  - ASTHENIA [None]
  - CONDITION AGGRAVATED [None]
  - DEATH [None]
  - DISEASE PROGRESSION [None]
  - DYSPNOEA [None]
  - FALL [None]
  - GENERALISED OEDEMA [None]
  - PULMONARY ARTERIAL HYPERTENSION [None]
  - SCLERODERMA [None]
